FAERS Safety Report 9884152 (Version 1)
Quarter: 2014Q1

REPORT INFORMATION
  Report Type: Spontaneous
  Country: US (occurrence: US)
  Receive Date: 20140210
  Receipt Date: 20140210
  Transmission Date: 20141002
  Serious: No
  Sender: FDA-Public Use
  Company Number: US-ALLERGAN-1318945US

PATIENT
  Age: 41 Year
  Sex: Female

DRUGS (3)
  1. BOTOX COSMETIC [Suspect]
     Indication: SKIN WRINKLING
     Dosage: 8-11 UNITS, SINGLE
     Dates: start: 20131122, end: 20131122
  2. BOTOX COSMETIC [Suspect]
     Dosage: 8-11 UNITS, SINGLE
     Dates: start: 20131108, end: 20131108
  3. BOTOX COSMETIC [Suspect]
     Dosage: 30-35 UNITS, SINGLE
     Dates: start: 20131025, end: 20131025

REACTIONS (3)
  - Off label use [Unknown]
  - Therapeutic response decreased [Unknown]
  - Drug ineffective [Unknown]
